FAERS Safety Report 6358721-X (Version None)
Quarter: 2009Q3

REPORT INFORMATION
  Report Type: 
  Country: None (occurrence: None)
  Receive Date: 20090914
  Receipt Date: 20090824
  Transmission Date: 20100115
  Serious: No
  Sender: FDA-Public Use
  Company Number: C-09-0196

PATIENT
  Age: 84 Year
  Sex: Female

DRUGS (4)
  1. CLOBETASOL PROPIONATE [Suspect]
     Indication: DERMATITIS
     Dates: start: 20090701, end: 20090901
  2. METOPROLOL [Concomitant]
  3. LEVOTHYROXINE SODIUM [Concomitant]
  4. TYLENOL (CAPLET) [Concomitant]

REACTIONS (1)
  - SKIN DISCOLOURATION [None]
